FAERS Safety Report 15089302 (Version 2)
Quarter: 2018Q4

REPORT INFORMATION
  Report Type: Spontaneous
  Country: FR (occurrence: FR)
  Receive Date: 20180629
  Receipt Date: 20181008
  Transmission Date: 20190204
  Serious: Yes (Death)
  Sender: FDA-Public Use
  Company Number: FR-ROCHE-2146771

PATIENT
  Age: 56 Year
  Sex: Female

DRUGS (7)
  1. EFFEXOR [Suspect]
     Active Substance: VENLAFAXINE HYDROCHLORIDE
     Indication: DEPRESSION
     Dosage: MOST RECENT DOSE: 24/MAY/2018
     Route: 048
     Dates: start: 20180524
  2. BACTRIM [Suspect]
     Active Substance: SULFAMETHOXAZOLE\TRIMETHOPRIM
     Indication: INFECTION PROPHYLAXIS
     Route: 048
     Dates: start: 20180524, end: 20180525
  3. ROVALCYTE [Suspect]
     Active Substance: VALGANCICLOVIR HYDROCHLORIDE
     Indication: INFECTION PROPHYLAXIS
     Dosage: MOST RECENT DOSE: 24/MAY/2018
     Route: 048
     Dates: start: 20180514
  4. IMBRUVICA [Suspect]
     Active Substance: IBRUTINIB
     Indication: CHRONIC LYMPHOCYTIC LEUKAEMIA
     Dosage: MOST RECENT DOSE: 25/MAY/2018
     Route: 048
     Dates: start: 20180425
  5. AMBISOME [Suspect]
     Active Substance: AMPHOTERICIN B
     Indication: LUNG DISORDER
     Dosage: MOST RECENT DOSE: 25/MAY/2018
     Route: 042
     Dates: start: 20180509
  6. OBINUTUZUMAB. [Suspect]
     Active Substance: OBINUTUZUMAB
     Indication: CHRONIC LYMPHOCYTIC LEUKAEMIA
     Dosage: MOST RECENT DOSE: 16/MAY/2018
     Route: 042
     Dates: start: 20180424
  7. TIENAM [Suspect]
     Active Substance: CILASTATIN SODIUM\IMIPENEM
     Indication: LUNG DISORDER
     Dosage: MOST RECENT DOSE: 25/MAY/2018
     Route: 042
     Dates: start: 20180520

REACTIONS (1)
  - Hyperammonaemic encephalopathy [Fatal]

NARRATIVE: CASE EVENT DATE: 20180525
